FAERS Safety Report 4723439-3 (Version None)
Quarter: 2005Q3

REPORT INFORMATION
  Report Type: 
  Country: None (occurrence: None)
  Receive Date: 20050725
  Receipt Date: 20050322
  Transmission Date: 20060218
  Serious: Yes (Hospitalization, Other)
  Sender: FDA-Public Use
  Company Number: 200512366US

PATIENT
  Sex: Female
  Weight: 66 kg

DRUGS (3)
  1. KETEK [Suspect]
     Indication: ACUTE SINUSITIS
     Dosage: DOSE: 2 TABLETS
     Route: 048
     Dates: start: 20050316, end: 20050317
  2. ROBITUSSIN-CF [Concomitant]
     Indication: COUGH
     Dosage: DOSE: ONE TSP
  3. TYLENOL [Concomitant]

REACTIONS (10)
  - COUGH [None]
  - DIARRHOEA [None]
  - FAECES DISCOLOURED [None]
  - GASTRIC ULCER HAEMORRHAGE [None]
  - HAEMATEMESIS [None]
  - HAEMOGLOBIN DECREASED [None]
  - HAEMORRHAGE [None]
  - HYPOTENSION [None]
  - PYREXIA [None]
  - TACHYCARDIA [None]
